FAERS Safety Report 14519836 (Version 1)
Quarter: 2018Q1

REPORT INFORMATION
  Report Type: Spontaneous
  Country: US (occurrence: US)
  Receive Date: 20180212
  Receipt Date: 20180212
  Transmission Date: 20180509
  Serious: No
  Sender: FDA-Public Use
  Company Number: US-LUNDBECK-DKLU2040690

PATIENT
  Age: 76 Year
  Sex: Male

DRUGS (2)
  1. NORTHERA [Suspect]
     Active Substance: DROXIDOPA
     Indication: PRODUCT USED FOR UNKNOWN INDICATION
     Dosage: SCHEDULE A
     Route: 065
     Dates: start: 20171020
  2. NORTHERA [Suspect]
     Active Substance: DROXIDOPA
     Dosage: SCHEDULE A
     Route: 065
     Dates: start: 2017

REACTIONS (1)
  - Incorrect dosage administered [Unknown]

NARRATIVE: CASE EVENT DATE: 20171128
